FAERS Safety Report 7671901-6 (Version None)
Quarter: 2011Q3

REPORT INFORMATION
  Report Type: 
  Country: None (occurrence: None)
  Receive Date: 20110809
  Receipt Date: 20110722
  Transmission Date: 20111222
  Serious: Yes (Hospitalization)
  Sender: FDA-Public Use
  Company Number: US-GLAXOSMITHKLINE-A0873613A

PATIENT
  Age: 71 Year
  Sex: Female
  Weight: 118.2 kg

DRUGS (4)
  1. AVANDAMET [Suspect]
     Indication: DIABETES MELLITUS
     Route: 048
  2. NEXIUM [Concomitant]
  3. ZOCOR [Concomitant]
  4. AVANDIA [Suspect]
     Indication: TYPE 2 DIABETES MELLITUS
     Route: 048
     Dates: start: 19990101, end: 20060101

REACTIONS (2)
  - CORONARY ARTERY OCCLUSION [None]
  - CORONARY ARTERY DISEASE [None]
